FAERS Safety Report 6960614-1 (Version None)
Quarter: 2010Q3

REPORT INFORMATION
  Report Type: 
  Country: None (occurrence: None)
  Receive Date: 20100901
  Receipt Date: 20100819
  Transmission Date: 20110219
  Serious: Yes (Other)
  Sender: FDA-Public Use
  Company Number: US-ELI_LILLY_AND_COMPANY-US201008000160

PATIENT
  Sex: Female

DRUGS (13)
  1. FORTEO [Suspect]
     Indication: OSTEOPOROSIS
     Dosage: 20 UG, DAILY (1/D)
     Dates: end: 20100818
  2. FORTEO [Suspect]
  3. TEGRETOL [Concomitant]
     Dosage: 800 MG, DAILY (1/D)
  4. ADVAIR DISKUS 100/50 [Concomitant]
     Dosage: 2 D/F, DAILY (1/D)
  5. SPIRIVA [Concomitant]
  6. ALBUTEROL [Concomitant]
  7. PROAIR HFA [Concomitant]
     Dosage: UNK, AS NEEDED
  8. MIRALAX [Concomitant]
     Dosage: 17 G, 3/D
  9. VITAMIN D [Concomitant]
     Dosage: 1000 MG, 2/D
  10. CALCIUM [Concomitant]
     Dosage: 300 MG, 3/D
  11. FOLIC ACID [Concomitant]
     Dosage: 35 MG, DAILY (1/D)
  12. ASCORBIC ACID [Concomitant]
     Dosage: 500 MG, DAILY (1/D)
  13. OXYGEN [Concomitant]
     Dosage: 2 LITER, AS NEEDED

REACTIONS (5)
  - ARTHRALGIA [None]
  - ERYTHEMA [None]
  - NEOPLASM [None]
  - PRURITUS [None]
  - SUBCUTANEOUS NODULE [None]
